FAERS Safety Report 8809596 (Version 2)
Quarter: 2014Q3

REPORT INFORMATION
  Report Type: Report from Study
  Country: US (occurrence: US)
  Receive Date: 20120926
  Receipt Date: 20140903
  Transmission Date: 20150326
  Serious: Yes (Other)
  Sender: FDA-Public Use
  Company Number: US-ROCHE-1127879

PATIENT
  Age: 63 Year
  Sex: Female
  Weight: 95 kg

DRUGS (5)
  1. GEMZAR [Concomitant]
     Active Substance: GEMCITABINE HYDROCHLORIDE
  2. ABRAXANE [Concomitant]
     Active Substance: PACLITAXEL
  3. DOCETAXEL [Concomitant]
     Active Substance: DOCETAXEL
  4. AVASTIN [Suspect]
     Active Substance: BEVACIZUMAB
     Indication: BREAST CANCER FEMALE
     Route: 065
     Dates: end: 20080722
  5. CARBOPLATIN. [Concomitant]
     Active Substance: CARBOPLATIN

REACTIONS (7)
  - Cellulitis [Unknown]
  - Device related infection [Recovered/Resolved]
  - Breast cancer recurrent [Unknown]
  - Off label use [Unknown]
  - Metastases to lung [Unknown]
  - Metastases to bone [Unknown]
  - Metastases to lymph nodes [Unknown]

NARRATIVE: CASE EVENT DATE: 20080722
